FAERS Safety Report 18473906 (Version 2)
Quarter: 2020Q4

REPORT INFORMATION
  Report Type: Report from Study
  Country: CA (occurrence: CA)
  Receive Date: 20201106
  Receipt Date: 20201117
  Transmission Date: 20210114
  Serious: Yes (Hospitalization)
  Sender: FDA-Public Use
  Company Number: CA-BAYER-2020-073027

PATIENT
  Sex: Female

DRUGS (1)
  1. NEXAVAR [Suspect]
     Active Substance: SORAFENIB
     Indication: LEUKAEMIA
     Dosage: UNK

REACTIONS (5)
  - Nothing by mouth order [Unknown]
  - Hospitalisation [Unknown]
  - Product use in unapproved indication [None]
  - Off label use [None]
  - Drug ineffective [None]
